FAERS Safety Report 20901438 (Version 1)
Quarter: 2022Q2

REPORT INFORMATION
  Report Type: Spontaneous
  Country: US (occurrence: None)
  Receive Date: 20220601
  Receipt Date: 20220601
  Transmission Date: 20220721
  Serious: Yes (Disabling, Other)
  Sender: FDA-Public Use
  Company Number: None

PATIENT
  Age: 32 Year
  Sex: Female
  Weight: 48.15 kg

DRUGS (1)
  1. GADAVIST [Suspect]
     Active Substance: GADOBUTROL
     Indication: X-ray with contrast
     Dosage: OTHER QUANTITY : 1 INJECTION(S);?OTHER FREQUENCY : ONLY DURING MRI;?
     Route: 042

REACTIONS (11)
  - Diarrhoea [None]
  - Abdominal pain upper [None]
  - Dry eye [None]
  - Chest pain [None]
  - Dyspnoea [None]
  - Muscular weakness [None]
  - Musculoskeletal stiffness [None]
  - Paraesthesia [None]
  - Electric shock sensation [None]
  - Food intolerance [None]
  - Vision blurred [None]

NARRATIVE: CASE EVENT DATE: 20220526
